FAERS Safety Report 6834888-1 (Version None)
Quarter: 2010Q3

REPORT INFORMATION
  Report Type: 
  Country: None (occurrence: None)
  Receive Date: 20100712
  Receipt Date: 20070625
  Transmission Date: 20110219
  Serious: No
  Sender: FDA-Public Use
  Company Number: US-PFIZER INC-2007029455

PATIENT
  Sex: Female

DRUGS (4)
  1. CHANTIX [Suspect]
     Indication: SMOKING CESSATION THERAPY
     Dates: start: 20070315, end: 20070401
  2. LYRICA [Concomitant]
  3. ZOLOFT [Concomitant]
  4. NORFLEX [Concomitant]

REACTIONS (1)
  - DRUG SCREEN POSITIVE [None]
